FAERS Safety Report 25145634 (Version 2)
Quarter: 2025Q2

REPORT INFORMATION
  Report Type: Spontaneous
  Country: US (occurrence: US)
  Receive Date: 20250401
  Receipt Date: 20250418
  Transmission Date: 20250716
  Serious: Yes (Hospitalization)
  Sender: ROCHE
  Company Number: US-ROCHE-10000241664

PATIENT
  Age: 54 Year
  Sex: Male
  Weight: 62.6 kg

DRUGS (4)
  1. HEMLIBRA [Suspect]
     Active Substance: EMICIZUMAB-KXWH
     Indication: Factor VIII deficiency
     Dosage: STRENGTH: 60 MG/0.4ML
     Route: 058
     Dates: start: 202502
  2. HEMLIBRA [Suspect]
     Active Substance: EMICIZUMAB-KXWH
     Dosage: STRENGTH: 300MG/2 ML
     Route: 058
     Dates: start: 202503
  3. HEMLIBRA [Suspect]
     Active Substance: EMICIZUMAB-KXWH
     Dosage: STRENGTH: 60 MG/0.4 ML
     Route: 058
     Dates: start: 202503
  4. RECOMBINATE INJ [Concomitant]

REACTIONS (3)
  - Haemorrhage [Unknown]
  - Off label use [Unknown]
  - Haemorrhage [Unknown]

NARRATIVE: CASE EVENT DATE: 20250404
